FAERS Safety Report 5089881-9 (Version None)
Quarter: 2006Q3

REPORT INFORMATION
  Report Type: 
  Country: None (occurrence: None)
  Receive Date: 20060828
  Receipt Date: 20060823
  Transmission Date: 20061208
  Serious: Yes (Other)
  Sender: FDA-Public Use
  Company Number: US-JNJFOC-20060603697

PATIENT
  Sex: Female
  Weight: 115.67 kg

DRUGS (8)
  1. REMICADE [Suspect]
     Dosage: TOTAL 578 MG
     Route: 042
  2. REMICADE [Suspect]
     Indication: CROHN'S DISEASE
     Dosage: TOTAL 576 MG
     Route: 042
  3. ASACOL [Concomitant]
  4. FOLIC ACID [Concomitant]
  5. GLYBURIDE [Concomitant]
  6. GLUCOPHAGE [Concomitant]
  7. ACTOS [Concomitant]
  8. HYDROCHLOROTHIAZIDE [Concomitant]

REACTIONS (7)
  - BACK PAIN [None]
  - CHEST PAIN [None]
  - INFUSION RELATED REACTION [None]
  - RASH GENERALISED [None]
  - RESPIRATORY DISTRESS [None]
  - SWELLING FACE [None]
  - VISION BLURRED [None]
